FAERS Safety Report 15391727 (Version 1)
Quarter: 2018Q3

REPORT INFORMATION
  Report Type: Spontaneous
  Country: US (occurrence: US)
  Receive Date: 20180910
  Receipt Date: 20180910
  Transmission Date: 20181010
  Serious: Yes (Hospitalization)
  Sender: FDA-Public Use
  Company Number: None

PATIENT
  Age: 70 Year
  Sex: Male

DRUGS (8)
  1. CLOTRIMAZOLE. [Concomitant]
     Active Substance: CLOTRIMAZOLE
  2. ALLOPURINOL. [Concomitant]
     Active Substance: ALLOPURINOL
  3. LONSURF [Suspect]
     Active Substance: TIPIRACIL HYDROCHLORIDE\TRIFLURIDINE
     Indication: NEOPLASM MALIGNANT
     Dosage: DAYS 1?5  DAYS 8?12
     Route: 048
     Dates: start: 20180728
  4. ALLOPURINOL. [Concomitant]
     Active Substance: ALLOPURINOL
  5. FERROUS SULF [Concomitant]
     Active Substance: FERROUS SULFATE
  6. FUROSEMIDE. [Concomitant]
     Active Substance: FUROSEMIDE
  7. IRBESARTAN. [Concomitant]
     Active Substance: IRBESARTAN
  8. CLOPIDOGREL [Concomitant]
     Active Substance: CLOPIDOGREL BISULFATE

REACTIONS (4)
  - Joint swelling [None]
  - Gait inability [None]
  - Peripheral swelling [None]
  - Drug dose omission [None]

NARRATIVE: CASE EVENT DATE: 20180827
